FAERS Safety Report 17965406 (Version 2)
Quarter: 2020Q3

REPORT INFORMATION
  Report Type: Spontaneous
  Country: US (occurrence: US)
  Receive Date: 20200701
  Receipt Date: 20200717
  Transmission Date: 20201103
  Serious: No
  Sender: FDA-Public Use
  Company Number: US-BEH-2020119451

PATIENT
  Age: 68 Year
  Sex: Female
  Weight: 47.62 kg

DRUGS (5)
  1. HIZENTRA [Suspect]
     Active Substance: HUMAN IMMUNOGLOBULIN G
     Dosage: UNK
     Route: 058
     Dates: start: 201912
  2. HIZENTRA [Suspect]
     Active Substance: HUMAN IMMUNOGLOBULIN G
     Indication: IMMUNODEFICIENCY
     Dosage: 5 GRAM/25ML, QW
     Route: 058
     Dates: start: 20200107
  3. HUMAN IMMUNOGLOBULIN [Concomitant]
     Route: 042
  4. HIZENTRA [Suspect]
     Active Substance: HUMAN IMMUNOGLOBULIN G
     Dosage: UNK
     Route: 058
  5. MOTRIN [Concomitant]
     Active Substance: IBUPROFEN
     Dosage: UNK, PRN
     Route: 065

REACTIONS (3)
  - Administration site mass [Recovered/Resolved]
  - Administration site erythema [Recovered/Resolved]
  - Localised infection [Recovered/Resolved]

NARRATIVE: CASE EVENT DATE: 20200602
